FAERS Safety Report 23706186 (Version 2)
Quarter: 2024Q2

REPORT INFORMATION
  Report Type: Spontaneous
  Country: CN (occurrence: CN)
  Receive Date: 20240404
  Receipt Date: 20240405
  Transmission Date: 20240716
  Serious: Yes (Life-Threatening, Hospitalization, Disabling, Other)
  Sender: FDA-Public Use
  Company Number: CN-009507513-2404CHN000495

PATIENT
  Age: 24 Year
  Sex: Male
  Weight: 45.5 kg

DRUGS (9)
  1. KEYTRUDA [Suspect]
     Active Substance: PEMBROLIZUMAB
     Indication: Hepatocellular carcinoma
     Dosage: 200MG, Q3W
     Route: 041
     Dates: start: 20220729, end: 20220729
  2. SINTILIMAB [Suspect]
     Active Substance: SINTILIMAB
     Indication: Hepatocellular carcinoma
     Dosage: 200MG, Q3W
     Route: 041
     Dates: start: 202112, end: 20220521
  3. SINTILIMAB [Suspect]
     Active Substance: SINTILIMAB
     Dosage: 200MG, Q3W
     Route: 041
     Dates: start: 20220818
  4. SINTILIMAB [Suspect]
     Active Substance: SINTILIMAB
     Dosage: 200MG, Q3W
     Route: 041
     Dates: start: 20230717, end: 20231011
  5. CAMRELIZUMAB [Suspect]
     Active Substance: CAMRELIZUMAB
     Indication: Hepatocellular carcinoma
     Dosage: 200MG, Q3W
     Route: 041
     Dates: start: 20231102, end: 20240226
  6. AVASTIN [Suspect]
     Active Substance: BEVACIZUMAB
     Indication: Hepatocellular carcinoma
     Dosage: 800MG, Q3W
     Route: 041
     Dates: start: 20230717, end: 20231127
  7. LENVATINIB MESYLATE [Concomitant]
     Active Substance: LENVATINIB MESYLATE
     Indication: Hepatocellular carcinoma
     Dosage: 8MG, QD
     Route: 048
     Dates: start: 20211215
  8. LENVATINIB MESYLATE [Concomitant]
     Active Substance: LENVATINIB MESYLATE
     Dosage: 8MG, QD
     Route: 048
     Dates: start: 20220818, end: 20230716
  9. LENVATINIB MESYLATE [Concomitant]
     Active Substance: LENVATINIB MESYLATE
     Dosage: 8MG, QD
     Route: 048
     Dates: start: 20231218, end: 20240224

REACTIONS (8)
  - Immune-mediated enterocolitis [Recovering/Resolving]
  - Colitis [Recovering/Resolving]
  - Gastric varices [Unknown]
  - Varices oesophageal [Unknown]
  - Chronic gastritis [Unknown]
  - Gastrointestinal disorder [Unknown]
  - Malignant neoplasm progression [Unknown]
  - Product use in unapproved indication [Unknown]

NARRATIVE: CASE EVENT DATE: 20220729
